FAERS Safety Report 5595219-0 (Version None)
Quarter: 2008Q1

REPORT INFORMATION
  Report Type: 
  Country: None (occurrence: None)
  Receive Date: 20080117
  Receipt Date: 20080105
  Transmission Date: 20080703
  Serious: Yes (Other)
  Sender: FDA-Public Use
  Company Number: US-PFIZER INC-2007083666

PATIENT
  Sex: Female

DRUGS (9)
  1. LYRICA [Suspect]
     Indication: FIBROMYALGIA
     Route: 048
     Dates: start: 20070914, end: 20070921
  2. MIRAPEX [Concomitant]
  3. WELLBUTRIN [Concomitant]
  4. BUSPAR [Concomitant]
  5. LORTAB [Concomitant]
  6. CYMBALTA [Concomitant]
  7. SYNTHROID [Concomitant]
  8. ELMIRON [Concomitant]
  9. KLONOPIN [Concomitant]

REACTIONS (3)
  - AGITATION [None]
  - INTENTIONAL DRUG MISUSE [None]
  - PANIC ATTACK [None]
